FAERS Safety Report 9117931 (Version 1)
Quarter: 2013Q1

REPORT INFORMATION
  Report Type: Spontaneous
  Country: US (occurrence: US)
  Receive Date: 20130225
  Receipt Date: 20130225
  Transmission Date: 20140127
  Serious: Yes (Other)
  Sender: FDA-Public Use
  Company Number: US-CUBIST PHARMACEUTICAL, INC.-2013CBST000103

PATIENT
  Age: 53 Year
  Sex: Female

DRUGS (1)
  1. CUBICIN [Suspect]
     Indication: PRODUCT USED FOR UNKNOWN INDICATION
     Dosage: 390 MG, Q48H
     Route: 042

REACTIONS (2)
  - Muscle disorder [Unknown]
  - Blood creatine phosphokinase increased [Unknown]
